FAERS Safety Report 4660185-9 (Version None)
Quarter: 2005Q2

REPORT INFORMATION
  Report Type: 
  Country: None (occurrence: None)
  Receive Date: 20050427
  Receipt Date: 20050209
  Transmission Date: 20051028
  Serious: No
  Sender: FDA-Public Use
  Company Number: 211682

PATIENT
  Age: 11 Year
  Sex: Male
  Weight: 29 kg

DRUGS (8)
  1. XOLAIR [Suspect]
     Indication: BRONCHOSPASM
     Dosage: 375 MG, Q2W, SUBCUTANEOUS
     Route: 058
     Dates: start: 20041015, end: 20050110
  2. SINUTUSS DM (PHENYLEPHRINE HYDROCHLORIDE, GUAIFENESIN, DEXTROMETHORPHA [Concomitant]
  3. SINGULAIR [Concomitant]
  4. ADVAIR DISKUS (FLUTICASONE PROPIONATE, SALMETEROL XINAFOATE) [Concomitant]
  5. ALLEGRA [Concomitant]
  6. FLONASE [Concomitant]
  7. PROVENTIL INHALER (ALBUTEROL SULFATE, ALBUTEROL) [Concomitant]
  8. XOPENEX [Concomitant]

REACTIONS (2)
  - ABDOMINAL PAIN UPPER [None]
  - VOMITING [None]
